FAERS Safety Report 5879188-1 (Version None)
Quarter: 2008Q3

REPORT INFORMATION
  Report Type: 
  Country: None (occurrence: None)
  Receive Date: 20080912
  Receipt Date: 20080912
  Transmission Date: 20090109
  Serious: Yes (Life-Threatening, Hospitalization)
  Sender: FDA-Public Use
  Company Number: None

PATIENT
  Age: 87 Year
  Sex: Female

DRUGS (13)
  1. HEPARIN [Suspect]
     Indication: ARTERIAL THROMBOSIS LIMB
     Dosage: IV INFUSION
     Route: 042
     Dates: start: 20080521, end: 20080523
  2. HYDROCHLOROTHIAZIDE [Concomitant]
  3. CALAN [Concomitant]
  4. SYNTHROID [Concomitant]
  5. LIPITOR [Concomitant]
  6. PROTONIX [Concomitant]
  7. ALLOPURINOL [Concomitant]
  8. NORVASC [Concomitant]
  9. DOCUSATE [Concomitant]
  10. REGULAR INSULIN [Concomitant]
  11. TYLENOL (CAPLET) [Concomitant]
  12. ULTRAM [Concomitant]
  13. MOM [Concomitant]

REACTIONS (4)
  - ABDOMINAL PAIN LOWER [None]
  - HAEMATOCRIT DECREASED [None]
  - ORTHOSTATIC HYPOTENSION [None]
  - SOMNOLENCE [None]
